FAERS Safety Report 7152022-8 (Version None)
Quarter: 2010Q4

REPORT INFORMATION
  Report Type: 
  Country: None (occurrence: None)
  Receive Date: 20101208
  Receipt Date: 20101208
  Transmission Date: 20110411
  Serious: Yes (Other)
  Sender: FDA-Public Use
  Company Number: None

PATIENT
  Age: 35 Year
  Sex: Female
  Weight: 49.8957 kg

DRUGS (2)
  1. HUMIRA [Suspect]
     Indication: RHEUMATOID ARTHRITIS
     Dosage: 40 MG BIWEEKLY SQ
     Route: 058
     Dates: start: 20080801, end: 20101206
  2. HUMIRA [Suspect]
     Indication: UVEITIS
     Dosage: 40 MG BIWEEKLY SQ
     Route: 058
     Dates: start: 20080801, end: 20101206

REACTIONS (4)
  - INJECTION SITE HAEMATOMA [None]
  - NEEDLE ISSUE [None]
  - PAIN [None]
  - PRODUCT PACKAGING ISSUE [None]
